FAERS Safety Report 8909740 (Version 2)
Quarter: 2013Q1

REPORT INFORMATION
  Report Type: Spontaneous
  Country: US (occurrence: None)
  Receive Date: 20121109
  Receipt Date: 20121116
  Transmission Date: 20140127
  Serious: Yes (Hospitalization)
  Sender: FDA-Public Use
  Company Number: LMI-2012-00359

PATIENT
  Age: 67 Year
  Sex: Female
  Weight: 116.12 kg

DRUGS (13)
  1. DEFINITY [Suspect]
     Indication: STRESS ECHOCARDIOGRAM
     Dosage: 1  ML  DEFINITY DILUTED IN  10 ML NORMAL SALINE (3 ML)
     Route: 040
     Dates: start: 20121024, end: 20121024
  2. ASPIRIN (ACETYLSALICYLIC ACID) (TABLET) [Concomitant]
  3. LOSARTAN (LOSARTAN) (TABLET) [Concomitant]
  4. BYSTOLIC (NEBIVOLOL HYDROCHLORIDE) (TABLET) [Concomitant]
  5. CLONIDINE (CLONIDINE) (TABLET) [Concomitant]
  6. PANTOPRAZOLE SODIUM (PANTROPRAZOLE SODIUM SESQUIHYDRATE) (TABLET) [Concomitant]
  7. PRAVASTATIN (PRAVASTATIN) (TABLET) [Concomitant]
  8. METFORMIN HCL (METFORMIN HYDROCHLORIDE) (TABLET) [Concomitant]
  9. MAGNESIUM OXIDE (MAGNESIUM OXIDE) (TABLET) [Concomitant]
  10. LASIX (FUROSEMIDE) (TABLET) [Concomitant]
  11. LANTUS (INSULIN GLARGINE) [Concomitant]
  12. NITROGLYCERIN (GLYCERYL TRINITRATE) [Concomitant]
  13. XANAX (ALPRAZOLAM) [Concomitant]

REACTIONS (5)
  - Hypertension [None]
  - Back pain [None]
  - Pain in extremity [None]
  - Chest pain [None]
  - Dyspnoea [None]
